FAERS Safety Report 25406325 (Version 1)
Quarter: 2025Q2

REPORT INFORMATION
  Report Type: Spontaneous
  Country: US (occurrence: US)
  Receive Date: 20250606
  Receipt Date: 20250606
  Transmission Date: 20250717
  Serious: Yes (Other)
  Sender: RANBAXY
  Company Number: US-SUN PHARMACEUTICAL INDUSTRIES LTD-2025R1-510238

PATIENT
  Age: 64 Year
  Sex: Male

DRUGS (4)
  1. IBUPROFEN [Suspect]
     Active Substance: IBUPROFEN
     Indication: Arthralgia
     Route: 065
  2. IBUPROFEN [Suspect]
     Active Substance: IBUPROFEN
     Indication: Back pain
  3. ASPIRIN [Suspect]
     Active Substance: ASPIRIN
     Indication: Arthralgia
     Route: 065
  4. ASPIRIN [Suspect]
     Active Substance: ASPIRIN
     Indication: Back pain

REACTIONS (3)
  - Complication associated with device [Unknown]
  - Intentional product misuse [Unknown]
  - Gastritis erosive [Unknown]
